FAERS Safety Report 18115523 (Version 4)
Quarter: 2021Q2

REPORT INFORMATION
  Report Type: Spontaneous
  Country: US (occurrence: US)
  Receive Date: 20200805
  Receipt Date: 20210405
  Transmission Date: 20210717
  Serious: Yes (Death, Other)
  Sender: FDA-Public Use
  Company Number: US-AMNEAL PHARMACEUTICALS-2020-AMRX-02249

PATIENT
  Age: 60 Year
  Sex: Female
  Weight: 68 kg

DRUGS (33)
  1. RYTARY [Interacting]
     Active Substance: CARBIDOPA\LEVODOPA
     Dosage: ALTERNATING WITH 48.75/195 MG, 4 /DAY
     Route: 065
     Dates: start: 202006, end: 2020
  2. GOCOVRI [Interacting]
     Active Substance: AMANTADINE
     Dosage: 274 MILLIGRAM, BEDTIME
     Route: 048
     Dates: end: 2019
  3. VITAMIN C [CALCIUM ASCORBATE] [Concomitant]
     Active Substance: CALCIUM ASCORBATE
     Indication: SUPPLEMENTATION THERAPY
     Dosage: UNK, 2000
     Route: 065
  4. PROBIOTICS NOS [Concomitant]
     Active Substance: PROBIOTICS NOS
     Indication: PRODUCT USED FOR UNKNOWN INDICATION
     Dosage: UNK
     Route: 065
  5. GOCOVRI [Interacting]
     Active Substance: AMANTADINE
     Dosage: 137 MILLIGRAM, BEDTIME
     Route: 048
     Dates: start: 20200612, end: 20200615
  6. GOCOVRI [Interacting]
     Active Substance: AMANTADINE
     Dosage: 137 MILLIGRAM, BEDTIME
     Route: 048
  7. GOCOVRI [Interacting]
     Active Substance: AMANTADINE
     Dosage: 274 MILLIGRAM, BEDTIME
     Route: 048
     Dates: start: 20181026
  8. MIRAPEX [Suspect]
     Active Substance: PRAMIPEXOLE DIHYDROCHLORIDE
     Indication: PRODUCT USED FOR UNKNOWN INDICATION
     Dosage: 3 MILLIGRAM, 1 /DAY
     Route: 065
     Dates: end: 2018
  9. RYTARY [Suspect]
     Active Substance: CARBIDOPA\LEVODOPA
     Indication: PARKINSON^S DISEASE
     Dosage: 36.25/145 MG, 3 TABLETS, DAILY
     Route: 065
     Dates: end: 202006
  10. RYTARY [Interacting]
     Active Substance: CARBIDOPA\LEVODOPA
     Dosage: 2 TABLETS, 4X/DAY, 145 MG
     Route: 065
     Dates: end: 2018
  11. RYTARY [Interacting]
     Active Substance: CARBIDOPA\LEVODOPA
     Dosage: 48.75/195 MG, 1 CAPSULE,3?4 X/DAY
     Route: 065
     Dates: start: 2020
  12. GOCOVRI [Interacting]
     Active Substance: AMANTADINE
     Dosage: 274 MILLIGRAM, BEDTIME
     Route: 048
     Dates: start: 2019, end: 2019
  13. GOCOVRI [Interacting]
     Active Substance: AMANTADINE
     Dosage: 137 MILLIGRAM, BEDTIME (ALONG WITH 68.5 MG CAPSULE)
     Route: 048
     Dates: start: 20200616, end: 2020
  14. GOCOVRI [Interacting]
     Active Substance: AMANTADINE
     Dosage: 137 MILLIGRAM, BEDTIME (ALONG WITH 68.5 MG CAPSULE)
     Route: 048
     Dates: start: 2020
  15. RIVASTIGMINE. [Concomitant]
     Active Substance: RIVASTIGMINE
     Indication: PRODUCT USED FOR UNKNOWN INDICATION
     Dosage: UNK
     Route: 065
  16. GOCOVRI [Interacting]
     Active Substance: AMANTADINE
     Dosage: 137 MILLIGRAM, BEDTIME
     Route: 048
     Dates: start: 20200603, end: 20200609
  17. MIRAPEX [Suspect]
     Active Substance: PRAMIPEXOLE DIHYDROCHLORIDE
     Dosage: 1.5 MILLIGRAM, 1 /DAY, NIGHTLY
     Route: 065
     Dates: start: 2018
  18. LEVOTHYROXINE SODIUM. [Concomitant]
     Active Substance: LEVOTHYROXINE SODIUM
     Indication: PRODUCT USED FOR UNKNOWN INDICATION
     Dosage: UNK
     Route: 065
  19. PRAMIPEXOLE. [Concomitant]
     Active Substance: PRAMIPEXOLE
     Indication: PRODUCT USED FOR UNKNOWN INDICATION
     Dosage: UNK
     Route: 065
  20. EFFEXOR [Concomitant]
     Active Substance: VENLAFAXINE HYDROCHLORIDE
     Indication: PRODUCT USED FOR UNKNOWN INDICATION
     Dosage: UNK
     Route: 065
     Dates: start: 2010
  21. GOCOVRI [Interacting]
     Active Substance: AMANTADINE
     Dosage: 274 MILLIGRAM, BEDTIME
     Route: 048
     Dates: start: 2019
  22. GOCOVRI [Interacting]
     Active Substance: AMANTADINE
     Dosage: 274 MILLIGRAM, BEDTIME
     Route: 048
     Dates: start: 2020, end: 20200602
  23. GOCOVRI [Interacting]
     Active Substance: AMANTADINE
     Dosage: 68.5 MILLIGRAM, BEDTIME
     Route: 065
     Dates: start: 20200616
  24. MARIJUANA [Concomitant]
     Active Substance: CANNABIS SATIVA SUBSP. INDICA TOP
     Indication: PRODUCT USED FOR UNKNOWN INDICATION
     Dosage: UNK
     Route: 065
  25. CARBIDOPA LEVODOPA [Concomitant]
     Active Substance: CARBIDOPA\LEVODOPA
     Indication: PRODUCT USED FOR UNKNOWN INDICATION
     Dosage: UNK,48.75?195 MG
     Route: 065
  26. VITAMIN D [VITAMIN D NOS] [Concomitant]
     Active Substance: VITAMIN D NOS
     Indication: SUPPLEMENTATION THERAPY
     Dosage: UNK, 20000
     Route: 065
  27. BIOTIN [Concomitant]
     Active Substance: BIOTIN
     Indication: SUPPLEMENTATION THERAPY
     Dosage: UNK
     Route: 065
  28. RYTARY [Interacting]
     Active Substance: CARBIDOPA\LEVODOPA
     Dosage: 1 CAPSULES 3?4 X/DAY
     Route: 065
     Dates: start: 2018, end: 202006
  29. GOCOVRI [Interacting]
     Active Substance: AMANTADINE
     Indication: DYSKINESIA
     Dosage: 137 MILLIGRAM, BEDTIME
     Route: 048
     Dates: start: 20181019, end: 20181025
  30. GOCOVRI [Interacting]
     Active Substance: AMANTADINE
     Dosage: 274 MILLIGRAM, BEDTIME
     Route: 048
     Dates: start: 2019, end: 2019
  31. ISTRADEFYLLINE [Suspect]
     Active Substance: ISTRADEFYLLINE
     Indication: PRODUCT USED FOR UNKNOWN INDICATION
     Dosage: UNK
     Route: 065
     Dates: start: 2020, end: 202005
  32. SERTRALINE HYDROCHLORIDE. [Concomitant]
     Active Substance: SERTRALINE HYDROCHLORIDE
     Indication: PRODUCT USED FOR UNKNOWN INDICATION
     Dosage: UNK
     Route: 065
  33. VENLAFAXINE [Concomitant]
     Active Substance: VENLAFAXINE HYDROCHLORIDE
     Indication: PRODUCT USED FOR UNKNOWN INDICATION
     Dosage: UNK
     Route: 065

REACTIONS (25)
  - Urinary incontinence [Recovered/Resolved]
  - Livedo reticularis [Not Recovered/Not Resolved]
  - Hallucination [Recovering/Resolving]
  - Somnolence [Recovering/Resolving]
  - Oropharyngeal pain [Recovering/Resolving]
  - Hypertonic bladder [Recovering/Resolving]
  - Dyskinesia [Recovering/Resolving]
  - Constipation [Recovering/Resolving]
  - Drug interaction [Unknown]
  - Crying [Recovering/Resolving]
  - Tremor [Recovering/Resolving]
  - Dystonia [Recovered/Resolved]
  - Dry mouth [Recovering/Resolving]
  - Feeling abnormal [Recovering/Resolving]
  - Unevaluable event [Recovering/Resolving]
  - Peripheral swelling [Recovering/Resolving]
  - Fall [Recovering/Resolving]
  - Confusional state [Recovering/Resolving]
  - Adverse event [Fatal]
  - Parkinson^s disease [Unknown]
  - Restless legs syndrome [Recovering/Resolving]
  - Swelling face [Recovering/Resolving]
  - Deep brain stimulation [Unknown]
  - Movement disorder [Recovered/Resolved]
  - Insomnia [Recovering/Resolving]

NARRATIVE: CASE EVENT DATE: 2010
